FAERS Safety Report 19372517 (Version 10)
Quarter: 2022Q1

REPORT INFORMATION
  Report Type: Report from Study
  Country: US (occurrence: US)
  Receive Date: 20210604
  Receipt Date: 20220328
  Transmission Date: 20220423
  Serious: No
  Sender: FDA-Public Use
  Company Number: NVSC2021US118963

PATIENT
  Sex: Male

DRUGS (4)
  1. COSENTYX [Suspect]
     Active Substance: SECUKINUMAB
     Indication: Psoriatic arthropathy
     Dosage: 300 MG, QW
     Route: 065
  2. COSENTYX [Suspect]
     Active Substance: SECUKINUMAB
     Dosage: 300 MG, QMO
     Route: 065
  3. COSENTYX [Suspect]
     Active Substance: SECUKINUMAB
     Dosage: UNK
     Route: 058
  4. CORTISONE [Concomitant]
     Active Substance: CORTISONE
     Indication: Joint swelling
     Dosage: UNK
     Route: 065

REACTIONS (7)
  - Injection site bruising [Unknown]
  - Arthralgia [Unknown]
  - Joint swelling [Not Recovered/Not Resolved]
  - Fatigue [Unknown]
  - Psoriasis [Unknown]
  - Drug ineffective [Unknown]
  - Intentional dose omission [Unknown]
